FAERS Safety Report 9536864 (Version 1)
Quarter: 2013Q2

REPORT INFORMATION
  Report Type: Spontaneous
  Country: US (occurrence: None)
  Receive Date: 20130507
  Receipt Date: 20130507
  Transmission Date: 20140414
  Serious: No
  Sender: FDA-Public Use
  Company Number: PHEH2012US024909

PATIENT
  Age: 58 Year
  Sex: Female

DRUGS (9)
  1. AFINITOR (RAD) TABLET, 10MG [Suspect]
     Route: 048
  2. AMBIEN (ZOLPIDEM TARTRATE) [Concomitant]
  3. EXEMESTANE (EXEMESTANE) [Concomitant]
  4. VICODIN ES (HYDROCODONE BITARTRATE, PARACETAMOL) [Concomitant]
  5. WELLBUTRIN (BUPROPION HYDROCHLORIDE) [Concomitant]
  6. CELEXA (CITALOPRAM HYDROBROMIDE) [Concomitant]
  7. OXYCONTIN (OXYCODONE HYDROCHLORIDE) [Concomitant]
  8. FIBER (POLYCARBOPHIL CALCIUM) [Concomitant]
  9. VITAMIN D NOS (VITAMIN D NOS) [Concomitant]

REACTIONS (1)
  - Drug ineffective [None]
